FAERS Safety Report 7170342-8 (Version None)
Quarter: 2010Q4

REPORT INFORMATION
  Report Type: 
  Country: None (occurrence: None)
  Receive Date: 20101217
  Receipt Date: 20100315
  Transmission Date: 20110411
  Serious: No
  Sender: FDA-Public Use
  Company Number: A0850232A

PATIENT
  Age: 77 Year
  Sex: Female

DRUGS (6)
  1. AVANDARYL [Suspect]
     Dosage: 1TAB PER DAY
     Route: 048
     Dates: start: 20091201
  2. PLAVIX [Concomitant]
     Dates: start: 20080201
  3. ASPIRIN [Concomitant]
  4. LISINOPRIL [Concomitant]
  5. WATER PILL [Concomitant]
     Route: 048
  6. FOLAST [Concomitant]

REACTIONS (3)
  - EXPIRED DRUG ADMINISTERED [None]
  - PAIN IN EXTREMITY [None]
  - WEIGHT INCREASED [None]
